FAERS Safety Report 6271854-1 (Version None)
Quarter: 2009Q3

REPORT INFORMATION
  Report Type: 
  Country: None (occurrence: None)
  Receive Date: 20090717
  Receipt Date: 20090707
  Transmission Date: 20100115
  Serious: Yes (Other)
  Sender: FDA-Public Use
  Company Number: PHHY2009JP14653

PATIENT
  Sex: Male

DRUGS (5)
  1. TASIGNA [Suspect]
     Indication: CHRONIC MYELOID LEUKAEMIA
     Dosage: 400MG DAILY
     Route: 048
     Dates: start: 20090406, end: 20090413
  2. GLEEVEC [Suspect]
     Dosage: 200 MG DAILY
     Dates: start: 20050223, end: 20080609
  3. GLEEVEC [Suspect]
     Dosage: 400 MG, UNK
     Dates: start: 20080610, end: 20090405
  4. TENORMIN [Concomitant]
     Indication: ATRIAL FIBRILLATION
     Route: 048
  5. NORVASC [Concomitant]
     Indication: HYPERTENSION
     Dosage: 2.5 MG, UNK
     Route: 048
     Dates: start: 20080825, end: 20090413

REACTIONS (7)
  - ATRIAL FIBRILLATION [None]
  - BLOOD CREATININE INCREASED [None]
  - BLOOD LACTATE DEHYDROGENASE INCREASED [None]
  - BLOOD URIC ACID INCREASED [None]
  - ELECTROCARDIOGRAM QT PROLONGED [None]
  - HEART RATE INCREASED [None]
  - PLATELET COUNT DECREASED [None]
